FAERS Safety Report 14533610 (Version 1)
Quarter: 2018Q1

REPORT INFORMATION
  Report Type: Spontaneous
  Country: US (occurrence: US)
  Receive Date: 20180215
  Receipt Date: 20180215
  Transmission Date: 20180509
  Serious: No
  Sender: FDA-Public Use
  Company Number: US-BAXTER-2018BAX004712

PATIENT
  Age: 56 Year
  Sex: Female

DRUGS (6)
  1. LACTATED RINGERS SOLUTION [Suspect]
     Active Substance: CALCIUM CHLORIDE\POTASSIUM CHLORIDE\SODIUM CHLORIDE\SODIUM LACTATE
     Dosage: INFUSION, ALONG WITH INFUVITE
     Route: 065
     Dates: start: 20180125, end: 20180125
  2. LACTATED RINGERS SOLUTION [Suspect]
     Active Substance: CALCIUM CHLORIDE\POTASSIUM CHLORIDE\SODIUM CHLORIDE\SODIUM LACTATE
     Dosage: INFUSION, RE-STARTED (ALONG WITH INFUVITE) AT LOWER RATE AND AFTER 25 MIN, WHEN THE PATIENT WAS DOIN
     Route: 065
     Dates: start: 20180125
  3. INFUVITE [Suspect]
     Active Substance: VITAMINS
     Indication: PRODUCT USED FOR UNKNOWN INDICATION
     Dosage: INFUSION, ALONG WITH LACTATED RINGER
     Route: 065
     Dates: start: 20180125, end: 20180125
  4. INFUVITE [Suspect]
     Active Substance: VITAMINS
     Dosage: INFUSION, RE-STARTED (ALONG WITH LACTATED RINGER) AT LOWER RATE AND AFTER 25 MIN, WHEN THE PATIENT W
     Route: 065
     Dates: start: 20180125
  5. LACTATED RINGERS SOLUTION [Suspect]
     Active Substance: CALCIUM CHLORIDE\POTASSIUM CHLORIDE\SODIUM CHLORIDE\SODIUM LACTATE
     Dosage: PLAIN LACTATED RINGER, AS KEPT VEIN OPEN (KVO)
     Route: 042
     Dates: start: 20180125
  6. LACTATED RINGERS SOLUTION [Suspect]
     Active Substance: CALCIUM CHLORIDE\POTASSIUM CHLORIDE\SODIUM CHLORIDE\SODIUM LACTATE
     Indication: PRODUCT USED FOR UNKNOWN INDICATION
     Route: 065

REACTIONS (1)
  - Nausea [Recovered/Resolved]

NARRATIVE: CASE EVENT DATE: 20180125
